FAERS Safety Report 5107297-3 (Version None)
Quarter: 2006Q3

REPORT INFORMATION
  Report Type: 
  Country: None (occurrence: None)
  Receive Date: 20060913
  Receipt Date: 20060901
  Transmission Date: 20061208
  Serious: Yes (Hospitalization, Other)
  Sender: FDA-Public Use
  Company Number: HQWYE312305SEP06

PATIENT
  Age: 30 Year
  Sex: Female

DRUGS (2)
  1. EFFEXOR XR [Suspect]
     Dosage: 28, 150 MG CAPSULES (OVERDOSE AMOUNT)
     Route: 048
     Dates: start: 20060901, end: 20060901
  2. SEROQUEL [Suspect]
     Dosage: 10 TABLETS (OVERDOSE AMOUNT)
     Dates: start: 20060901, end: 20060901

REACTIONS (2)
  - DRUG TOXICITY [None]
  - MULTIPLE DRUG OVERDOSE INTENTIONAL [None]
